FAERS Safety Report 16580303 (Version 1)
Quarter: 2019Q3

REPORT INFORMATION
  Report Type: Spontaneous
  Country: FR (occurrence: FR)
  Receive Date: 20190716
  Receipt Date: 20190716
  Transmission Date: 20191004
  Serious: Yes (Hospitalization)
  Sender: FDA-Public Use
  Company Number: PHHY2019FR159422

PATIENT
  Age: 89 Year
  Sex: Male

DRUGS (3)
  1. CO TRIMOXAZOL [Suspect]
     Active Substance: SULFAMETHOXAZOLE\TRIMETHOPRIM
     Indication: PATHOGEN RESISTANCE
     Dosage: 2 DF, QD
     Route: 048
     Dates: start: 20190516, end: 20190529
  2. ATORVASTATINE [Suspect]
     Active Substance: ATORVASTATIN
     Indication: PRODUCT USED FOR UNKNOWN INDICATION
     Dosage: 80 MG, QD
     Route: 048
     Dates: end: 20190528
  3. PARACETAMOL B. BRAUN [Suspect]
     Active Substance: ACETAMINOPHEN
     Indication: PAIN
     Dosage: 2 G, QD
     Route: 042
     Dates: start: 20190525, end: 20190527

REACTIONS (2)
  - Hepatic encephalopathy [Recovered/Resolved]
  - Hepatitis [Recovering/Resolving]

NARRATIVE: CASE EVENT DATE: 20190529
